FAERS Safety Report 24396107 (Version 2)
Quarter: 2024Q4

REPORT INFORMATION
  Report Type: Report from Study
  Country: NL (occurrence: NL)
  Receive Date: 20241004
  Receipt Date: 20241008
  Transmission Date: 20250115
  Serious: Yes (Death, Life-Threatening)
  Sender: ABBVIE
  Company Number: NL-ABBVIE-5947905

PATIENT
  Sex: Male

DRUGS (10)
  1. CARBIDOPA\LEVODOPA [Suspect]
     Active Substance: CARBIDOPA\LEVODOPA
     Indication: Parkinson^s disease
     Dosage: MD: 13.0ML, CD: 4.5ML/H, ED: 4.0ML?DURATION TEXT: REMAINS AT 16 HOURS
     Route: 050
     Dates: start: 20240805, end: 20240912
  2. CARBIDOPA\LEVODOPA [Suspect]
     Active Substance: CARBIDOPA\LEVODOPA
     Route: 050
     Dates: start: 20210308
  3. CARBIDOPA\LEVODOPA [Suspect]
     Active Substance: CARBIDOPA\LEVODOPA
     Dosage: MD: 13.0ML, CD: 4.5ML/H, ED: 4.0ML?DURATION TEXT: REMAINS AT 16 HOURS, LAST ADMIN DATE-2024
     Route: 050
     Dates: start: 20240924, end: 20241003
  4. CARBIDOPA\LEVODOPA [Suspect]
     Active Substance: CARBIDOPA\LEVODOPA
     Dosage: MD: 13.0ML, CD: 4.5ML/H, ED: 4.0ML?DURATION TEXT: REMAINS AT 16 HOURS
     Route: 050
     Dates: start: 20240912, end: 20240924
  5. POLYETHYLENE GLYCOLS [Concomitant]
     Active Substance: POLYETHYLENE GLYCOLS
     Indication: Constipation
     Dosage: FREQUENCY TEXT: 2X PER DAY 1 SACHET/ 1X PER DAY 1 SACHET
  6. SIMVASTATIN [Concomitant]
     Active Substance: SIMVASTATIN
     Indication: Blood cholesterol
     Dosage: FORM STRENGTH: 20 MILLIGRAM
  7. PROSTAVIT [Concomitant]
     Indication: Prostatic disorder
  8. CHOLECALCIFEROL [Concomitant]
     Active Substance: CHOLECALCIFEROL
     Indication: Vitamin D deficiency
     Dosage: 5600 E
  9. MIRTAZAPINE [Concomitant]
     Active Substance: MIRTAZAPINE
     Indication: Depression
     Dosage: FORM STRENGTH: 15 MILLIGRAM
  10. Solifenacine/tamsulosine [Concomitant]
     Indication: Micturition disorder
     Dosage: 6/0,4 MG
     Route: 065

REACTIONS (4)
  - Hip fracture [Fatal]
  - Terminal state [Not Recovered/Not Resolved]
  - Gastrointestinal motility disorder [Unknown]
  - Fall [Unknown]

NARRATIVE: CASE EVENT DATE: 20240901
